FAERS Safety Report 9803828 (Version 1)
Quarter: 2014Q1

REPORT INFORMATION
  Report Type: Spontaneous
  Country: US (occurrence: US)
  Receive Date: 20140108
  Receipt Date: 20140108
  Transmission Date: 20141002
  Serious: No
  Sender: FDA-Public Use
  Company Number: US-GLAXOSMITHKLINE-A1045061A

PATIENT
  Age: 64 Year
  Sex: Female

DRUGS (9)
  1. LOVAZA [Suspect]
     Indication: BLOOD TRIGLYCERIDES INCREASED
     Dosage: 2CAP TWICE PER DAY
     Route: 048
     Dates: start: 20131004
  2. PLAVIX [Concomitant]
  3. METFORMIN [Concomitant]
  4. GLIPIZIDE [Concomitant]
  5. DIOVAN/HCTZ [Concomitant]
  6. METOPROLOL [Concomitant]
  7. ALLOPURINOL [Concomitant]
  8. LIPITOR [Concomitant]
  9. ASPIRIN [Concomitant]

REACTIONS (1)
  - Off label use [Unknown]
